FAERS Safety Report 7634534-3 (Version None)
Quarter: 2011Q3

REPORT INFORMATION
  Report Type: 
  Country: None (occurrence: None)
  Receive Date: 20110725
  Receipt Date: 20110712
  Transmission Date: 20111222
  Serious: Yes (Hospitalization, Other)
  Sender: FDA-Public Use
  Company Number: US-ELI_LILLY_AND_COMPANY-US201102001654

PATIENT
  Sex: Male

DRUGS (17)
  1. MAGNESIUM PLUS                     /01486801/ [Concomitant]
  2. LACTOBACILLUS [Concomitant]
  3. FLOMAX [Concomitant]
     Dosage: .4 MG, QD
  4. LEXAPRO [Concomitant]
     Dosage: 40 MG, QD
  5. SEROQUEL [Concomitant]
     Dosage: 100 MG, QD
  6. NAC                                /00082801/ [Concomitant]
  7. PROTONIX [Concomitant]
     Dosage: 40 MG, QD
  8. MULTI-VITAMIN [Concomitant]
  9. PREDNISONE TAB [Concomitant]
     Dosage: 5 MG, QD
  10. BACTRIM [Concomitant]
  11. GARLIC [Concomitant]
  12. FORTEO [Suspect]
     Indication: OSTEOPOROSIS
     Dosage: 20 UG, QD
     Dates: start: 20100901, end: 20110327
  13. ACTIGALL [Concomitant]
     Dosage: 300 MG, TID
  14. ASPIRIN [Concomitant]
     Dosage: 81 MG, QD
  15. OXYGEN [Concomitant]
  16. PROGRAS [Concomitant]
     Dosage: 5 MG, BID
  17. SYNTHROID [Concomitant]
     Dosage: .1 MG, QD

REACTIONS (11)
  - BLOOD CREATININE INCREASED [None]
  - DIARRHOEA [None]
  - FEELING COLD [None]
  - INCORRECT DOSE ADMINISTERED [None]
  - HAEMOCHROMATOSIS [None]
  - DRUG DOSE OMISSION [None]
  - URINARY TRACT INFECTION [None]
  - DEHYDRATION [None]
  - OVERDOSE [None]
  - TREMOR [None]
  - INTENTIONAL DRUG MISUSE [None]
